FAERS Safety Report 10156731 (Version 2)
Quarter: 2014Q3

REPORT INFORMATION
  Report Type: Spontaneous
  Country: GB (occurrence: None)
  Receive Date: 20140505
  Receipt Date: 20140721
  Transmission Date: 20150326
  Serious: Yes (Other)
  Sender: FDA-Public Use
  Company Number: SYM-2014-20269

PATIENT
  Sex: Female

DRUGS (3)
  1. METRONIDAZOLE. [Suspect]
     Active Substance: METRONIDAZOLE
     Indication: PRODUCT USED FOR UNKNOWN INDICATION
     Dosage: 800 MG, 2 IN 1 D
     Dates: start: 20140325
  2. CLARITHROMYCIN (CLARITHROMYCIN) [Suspect]
     Active Substance: CLARITHROMYCIN
     Indication: PRODUCT USED FOR UNKNOWN INDICATION
     Dosage: 500 MG, 2 IN 1 D, ORAL
     Route: 048
     Dates: start: 20140325
  3. LANSOPRAZOLE (LANSOPRAZOLE) [Suspect]
     Active Substance: LANSOPRAZOLE
     Indication: PRODUCT USED FOR UNKNOWN INDICATION
     Dates: start: 20140325

REACTIONS (18)
  - Eye pain [None]
  - Chromaturia [None]
  - Lip swelling [None]
  - Headache [None]
  - Hearing impaired [None]
  - Nausea [None]
  - Eye pruritus [None]
  - Fatigue [None]
  - Arthralgia [None]
  - Somnolence [None]
  - Feeling of body temperature change [None]
  - Back pain [None]
  - Dysgeusia [None]
  - Contusion [None]
  - Oral pain [None]
  - Disorientation [None]
  - Dyskinesia [None]
  - Oral pruritus [None]
